FAERS Safety Report 19310140 (Version 7)
Quarter: 2022Q2

REPORT INFORMATION
  Report Type: Spontaneous
  Country: GB (occurrence: GB)
  Receive Date: 20210526
  Receipt Date: 20220621
  Transmission Date: 20220721
  Serious: Yes (Death, Hospitalization, Other)
  Sender: FDA-Public Use
  Company Number: GB-ROCHE-2828534

PATIENT
  Age: 44 Year
  Sex: Female
  Weight: 68.9 kg

DRUGS (43)
  1. BEVACIZUMAB [Suspect]
     Active Substance: BEVACIZUMAB
     Indication: Non-small cell lung cancer
     Dosage: 1000 MILLIGRAM
     Route: 065
     Dates: start: 20201216
  2. ATEZOLIZUMAB [Suspect]
     Active Substance: ATEZOLIZUMAB
     Indication: Non-small cell lung cancer
     Dosage: 1200 MILLIGRAM, Q3WK
     Route: 041
     Dates: start: 20201216
  3. ATEZOLIZUMAB [Suspect]
     Active Substance: ATEZOLIZUMAB
     Dosage: 1200 MILLIGRAM, Q3WK
     Route: 041
     Dates: start: 20200217
  4. CARBOPLATIN [Suspect]
     Active Substance: CARBOPLATIN
     Indication: Non-small cell lung cancer
     Dosage: 450 MILLIGRAM
     Route: 065
     Dates: start: 20201216
  5. ETOPOSIDE [Suspect]
     Active Substance: ETOPOSIDE
     Indication: Non-small cell lung cancer
     Dosage: UNK
     Route: 048
  6. ETOPOSIDE [Suspect]
     Active Substance: ETOPOSIDE
     Dosage: UNK
     Route: 065
  7. PACLITAXEL [Suspect]
     Active Substance: PACLITAXEL
     Indication: Non-small cell lung cancer
     Dosage: 240 MILLIGRAM
     Route: 065
     Dates: start: 20201216
  8. METHYLPREDNISOLONE [Suspect]
     Active Substance: METHYLPREDNISOLONE
     Indication: Product used for unknown indication
     Dosage: 130 MILLIGRAM
     Route: 048
  9. METHYLPREDNISOLONE [Suspect]
     Active Substance: METHYLPREDNISOLONE
     Dosage: 2 MILLIGRAM/KILOGRAM, QD
     Route: 042
     Dates: start: 20210310
  10. AMITRIPTYLINE [Concomitant]
     Active Substance: AMITRIPTYLINE
     Dosage: 1 DOSAGE FORM, DAILY
     Route: 065
  11. AMITRIPTYLINE [Concomitant]
     Active Substance: AMITRIPTYLINE
  12. CITALOPRAM [Concomitant]
     Active Substance: CITALOPRAM HYDROBROMIDE
     Dosage: 1 DF, QD
     Route: 065
  13. COSMOCOL [Concomitant]
     Indication: Constipation
     Dosage: UNK UNK, AS NECESSARY
     Route: 065
     Dates: start: 20190906
  14. DALTEPARIN [Concomitant]
     Active Substance: DALTEPARIN
     Dosage: 1 DF, QD
     Route: 065
     Dates: start: 20201228
  15. DOCUSATE [Concomitant]
     Active Substance: DOCUSATE
     Indication: Constipation
     Dosage: UNK, AS NECESSARY
     Route: 065
     Dates: start: 20210118
  16. IBUPROFEN [Concomitant]
     Active Substance: IBUPROFEN
     Indication: Pain
     Dosage: UNK, AS NECESSARY
     Route: 065
  17. IBUPROFEN [Concomitant]
     Active Substance: IBUPROFEN
  18. POLYETHYLENE GLYCOL 3350\POTASSIUM CHLORIDE\SODIUM BICARBONATE\SODIUM [Concomitant]
     Active Substance: POLYETHYLENE GLYCOL 3350\POTASSIUM CHLORIDE\SODIUM BICARBONATE\SODIUM CHLORIDE
     Dosage: UNK
  19. LEVOTHYROXINE [Concomitant]
     Active Substance: LEVOTHYROXINE
     Dosage: 1 DF, QD
     Route: 065
  20. MORPHINE [Concomitant]
     Active Substance: MORPHINE
     Indication: Cancer pain
     Dosage: 2DF, QD
     Route: 065
     Dates: start: 20201203
  21. MORPHINE [Concomitant]
     Active Substance: MORPHINE
     Dosage: 120 MILLIGRAM
     Route: 065
  22. MORPHINE [Concomitant]
     Active Substance: MORPHINE
     Dosage: 90 MILLIGRAM, BID (INCREASED)
     Route: 065
  23. MORPHINE [Concomitant]
     Active Substance: MORPHINE
  24. OMEPRAZOLE [Concomitant]
     Active Substance: OMEPRAZOLE
     Indication: Prophylaxis
     Dosage: UNK UNK, QD
     Route: 065
     Dates: start: 20200724
  25. ONDANSETRON [Concomitant]
     Active Substance: ONDANSETRON
     Indication: Prophylaxis
     Dosage: UNK, TID
     Route: 065
     Dates: start: 20210211
  26. MORPHINE SULFATE [Concomitant]
     Active Substance: MORPHINE SULFATE
     Indication: Cancer pain
     Dosage: UNK, AS NECESSARY
     Route: 065
     Dates: start: 20201124
  27. ACETAMINOPHEN [Concomitant]
     Active Substance: ACETAMINOPHEN
     Dosage: 4 DF, QID
     Route: 065
     Dates: start: 20201223
  28. SENNA [Concomitant]
     Active Substance: SENNA LEAF\SENNOSIDES\SENNOSIDES A AND B
     Dosage: UNK
  29. SENNA LEAF [Concomitant]
     Active Substance: SENNA LEAF
     Dosage: UNK
  30. LEVOMEPROMAZINE [Concomitant]
     Active Substance: LEVOMEPROMAZINE
     Dosage: 12.50 MILLIGRAM
     Dates: start: 20210403
  31. LEVOMEPROMAZINE [Concomitant]
     Active Substance: LEVOMEPROMAZINE
  32. POLYETHYLENE GLYCOLS [Concomitant]
     Active Substance: POLYETHYLENE GLYCOLS
     Indication: Constipation
     Dosage: UNK, AS NECESSARY
     Route: 065
     Dates: start: 20190906
  33. ASTRAZENECA COVID-19 VACCINE [Concomitant]
     Active Substance: AZD-1222
  34. DEXAMETHASONE [Concomitant]
     Active Substance: DEXAMETHASONE
     Dosage: 20 MILLIGRAM
     Dates: start: 20201216, end: 20201216
  35. DEXAMETHASONE [Concomitant]
     Active Substance: DEXAMETHASONE
     Dosage: 20 MILLIGRAM
     Dates: start: 20210106, end: 20210106
  36. DEXAMETHASONE [Concomitant]
     Active Substance: DEXAMETHASONE
     Dosage: 20 MILLIGRAM
     Dates: start: 20210127, end: 20210127
  37. ESTRADIOL [Concomitant]
     Active Substance: ESTRADIOL
  38. ESTRADIOL [Concomitant]
     Active Substance: ESTRADIOL
  39. METOCLOPRAMIDE [Concomitant]
     Active Substance: METOCLOPRAMIDE
  40. METOCLOPRAMIDE [Concomitant]
     Active Substance: METOCLOPRAMIDE
  41. RANITIDINE [Concomitant]
     Active Substance: RANITIDINE
     Dosage: 50 MILLIGRAM
     Dates: start: 20201216, end: 20201216
  42. RANITIDINE [Concomitant]
     Active Substance: RANITIDINE
     Dosage: 50 MILLIGRAM
     Dates: start: 20210127, end: 20210127
  43. RANITIDINE [Concomitant]
     Active Substance: RANITIDINE

REACTIONS (10)
  - Hepatic failure [Recovered/Resolved]
  - Disease progression [Fatal]
  - Abdominal pain upper [Not Recovered/Not Resolved]
  - Product use in unapproved indication [Unknown]
  - General physical health deterioration [Unknown]
  - Sinus tachycardia [Unknown]
  - Dyspnoea [Unknown]
  - Fatigue [Recovered/Resolved]
  - Nausea [Unknown]
  - Vomiting [Unknown]

NARRATIVE: CASE EVENT DATE: 20201216
